FAERS Safety Report 12833189 (Version 3)
Quarter: 2016Q4

REPORT INFORMATION
  Report Type: Spontaneous
  Country: US (occurrence: US)
  Receive Date: 20161010
  Receipt Date: 20161119
  Transmission Date: 20170207
  Serious: Yes (Other)
  Sender: FDA-Public Use
  Company Number: US-JNJFOC-20161007404

PATIENT
  Age: 49 Year
  Sex: Female
  Weight: 52.62 kg

DRUGS (1)
  1. LEVAQUIN [Suspect]
     Active Substance: LEVOFLOXACIN
     Indication: PRODUCT USED FOR UNKNOWN INDICATION
     Route: 048
     Dates: start: 200905

REACTIONS (2)
  - Neuropathy peripheral [Unknown]
  - Muscle rupture [Unknown]

NARRATIVE: CASE EVENT DATE: 200906
